FAERS Safety Report 24243283 (Version 1)
Quarter: 2024Q3

REPORT INFORMATION
  Report Type: Spontaneous
  Country: RO (occurrence: RO)
  Receive Date: 20240823
  Receipt Date: 20240823
  Transmission Date: 20241016
  Serious: Yes (Life-Threatening, Other)
  Sender: MYLAN
  Company Number: RO-SUN PHARMACEUTICAL INDUSTRIES LTD-2024R1-462991

PATIENT
  Age: 2 Year
  Sex: Female
  Weight: 12.5 kg

DRUGS (3)
  1. VANCOMYCIN [Suspect]
     Active Substance: VANCOMYCIN
     Indication: Pneumonia
     Dosage: 60 MILLIGRAM/KILOGRAM
     Route: 042
  2. CEFTRIAXONE [Suspect]
     Active Substance: CEFTRIAXONE\CEFTRIAXONE SODIUM
     Indication: Pneumonia
     Dosage: 100 MILLIGRAM/KILOGRAM, QD (100 MILLIGRAM/KILOGRAM/DAY)
     Route: 042
  3. METHYLPREDNISOLONE [Suspect]
     Active Substance: METHYLPREDNISOLONE
     Indication: Pneumonia
     Dosage: 4 MILLIGRAM/KILOGRAM, QD (4 MILLIGRAM/KILOGRAM/DAY)
     Route: 065

REACTIONS (4)
  - Tonic convulsion [Unknown]
  - Bronchiectasis [Unknown]
  - Thrombosis [Unknown]
  - Metabolic acidosis [Unknown]
